FAERS Safety Report 4747742-6 (Version None)
Quarter: 2005Q3

REPORT INFORMATION
  Report Type: 
  Country: None (occurrence: None)
  Receive Date: 20050817
  Receipt Date: 20050817
  Transmission Date: 20060218
  Serious: Yes (Death, Life-Threatening, Hospitalization)
  Sender: FDA-Public Use
  Company Number: None

PATIENT
  Age: 82 Year
  Sex: Male
  Weight: 102 kg

DRUGS (9)
  1. INTEGRILIN [Suspect]
     Indication: CORONARY ARTERY DISEASE
     Dates: start: 20050709, end: 20050713
  2. INTEGRILIN [Suspect]
     Indication: MYOCARDIAL INFARCTION
     Dates: start: 20050709, end: 20050713
  3. INSULIN [Concomitant]
  4. LOPRESSOR [Concomitant]
  5. ASPIRIN [Concomitant]
  6. ROSUVASTATIN [Concomitant]
  7. MUCOMYST [Concomitant]
  8. NITROGLYCERIN [Concomitant]
  9. XOPENEX [Concomitant]

REACTIONS (2)
  - CARDIAC ARREST [None]
  - PLATELET COUNT DECREASED [None]
